FAERS Safety Report 18168145 (Version 1)
Quarter: 2020Q3

REPORT INFORMATION
  Report Type: Spontaneous
  Country: US (occurrence: US)
  Receive Date: 20200818
  Receipt Date: 20200818
  Transmission Date: 20201103
  Serious: No
  Sender: FDA-Public Use
  Company Number: None

PATIENT
  Age: 52 Year
  Sex: Male

DRUGS (4)
  1. ESCITALOPRAM [Concomitant]
     Active Substance: ESCITALOPRAM OXALATE
  2. JYNARQUE [Suspect]
     Active Substance: TOLVAPTAN
     Dosage: ?          OTHER DOSE:60?30MG;?
     Dates: start: 20190404
  3. PAROXETINE. [Concomitant]
     Active Substance: PAROXETINE
  4. ZOLPIDEM [Concomitant]
     Active Substance: ZOLPIDEM TARTRATE

REACTIONS (1)
  - Pollakiuria [None]
